FAERS Safety Report 16146042 (Version 1)
Quarter: 2019Q2

REPORT INFORMATION
  Report Type: Spontaneous
  Country: US (occurrence: US)
  Receive Date: 20190402
  Receipt Date: 20190402
  Transmission Date: 20190711
  Serious: No
  Sender: FDA-Public Use
  Company Number: US-BRISTOL-MYERS SQUIBB COMPANY-BMS-2019-032107

PATIENT
  Age: 71 Year
  Sex: Female
  Weight: 64.41 kg

DRUGS (1)
  1. ELIQUIS [Suspect]
     Active Substance: APIXABAN
     Indication: CEREBROVASCULAR ACCIDENT PROPHYLAXIS
     Dosage: 5 MILLIGRAM, BID
     Route: 048
     Dates: start: 20190325

REACTIONS (3)
  - Arthralgia [Unknown]
  - Erythema [Unknown]
  - Joint swelling [Unknown]

NARRATIVE: CASE EVENT DATE: 20190325
